FAERS Safety Report 10975085 (Version 2)
Quarter: 2015Q3

REPORT INFORMATION
  Report Type: Spontaneous
  Country: DE (occurrence: DE)
  Receive Date: 20150401
  Receipt Date: 20150901
  Transmission Date: 20151125
  Serious: Yes (Hospitalization, Other)
  Sender: FDA-Public Use
  Company Number: DE-NOVEN PHARMACEUTICALS, INC.-DE2015000087

PATIENT

DRUGS (1)
  1. PAROXETINE [Suspect]
     Active Substance: PAROXETINE\PAROXETINE HYDROCHLORIDE
     Indication: DEPRESSION
     Dosage: 40 MG, (0-34.3 GESTATIONAL WEEK)
     Route: 064
     Dates: start: 20130715, end: 20140313

REACTIONS (4)
  - Intraventricular haemorrhage neonatal [Recovering/Resolving]
  - Premature baby [Unknown]
  - Foetal exposure during pregnancy [Unknown]
  - Neonatal tachypnoea [Recovered/Resolved]

NARRATIVE: CASE EVENT DATE: 2013
